FAERS Safety Report 24778294 (Version 1)
Quarter: 2024Q4

REPORT INFORMATION
  Report Type: Spontaneous
  Country: CN (occurrence: CN)
  Receive Date: 20241226
  Receipt Date: 20241226
  Transmission Date: 20250114
  Serious: Yes (Hospitalization)
  Sender: DAIICHI
  Company Number: CN-DSJP-DS-2024-114572-CN

PATIENT
  Age: 75 Year
  Sex: Female

DRUGS (1)
  1. EDOXABAN [Suspect]
     Active Substance: EDOXABAN
     Indication: Venous thrombosis limb
     Dosage: 60 MG, QD
     Route: 048
     Dates: start: 20241111, end: 20241123

REACTIONS (1)
  - Coagulation test abnormal [Recovering/Resolving]

NARRATIVE: CASE EVENT DATE: 20241123
